FAERS Safety Report 5373250-8 (Version None)
Quarter: 2007Q2

REPORT INFORMATION
  Report Type: 
  Country: None (occurrence: None)
  Receive Date: 20070628
  Receipt Date: 20070619
  Transmission Date: 20071010
  Serious: Yes (Other)
  Sender: FDA-Public Use
  Company Number: PHBS2007BR07578

PATIENT
  Age: 28 Year
  Sex: Male
  Weight: 85 kg

DRUGS (4)
  1. TRILEPTAL [Suspect]
     Indication: COMPLEX PARTIAL SEIZURES
     Dosage: 1 TABLET IN MORNING AND 2 TABLETS AT NIGHT
     Route: 048
  2. TRILEPTAL [Suspect]
     Dosage: 1 TABLET IN MORNING AND 2 TABLETS AT NIGHT
     Route: 048
  3. TRILEPTAL [Suspect]
     Dosage: 1200 MG/DAY
     Route: 048
  4. TRILEPTAL [Suspect]
     Dosage: 600 MG, BID
     Route: 048

REACTIONS (6)
  - AMNESIA [None]
  - COMPLEX PARTIAL SEIZURES [None]
  - DEPRESSION [None]
  - HEADACHE [None]
  - POOR QUALITY DRUG ADMINISTERED [None]
  - VISUAL DISTURBANCE [None]
